FAERS Safety Report 7049122-X (Version None)
Quarter: 2010Q4

REPORT INFORMATION
  Report Type: 
  Country: None (occurrence: None)
  Receive Date: 20101018
  Receipt Date: 20101007
  Transmission Date: 20110411
  Serious: Yes (Other)
  Sender: FDA-Public Use
  Company Number: US-NOVOPROD-316394

PATIENT
  Sex: Male
  Weight: 104.31 kg

DRUGS (8)
  1. VICTOZA [Suspect]
     Indication: TYPE 2 DIABETES MELLITUS
     Dosage: 1.8 MG, QD
     Route: 058
     Dates: start: 20100720, end: 20100930
  2. ENALAPRIL                          /00574902/ [Concomitant]
     Indication: RENAL FAILURE CHRONIC
     Dosage: 20 MG, BID
     Route: 048
  3. ENALAPRIL                          /00574902/ [Concomitant]
     Indication: HYPERTENSION
  4. DEMADEX [Concomitant]
     Indication: HYPERTENSION
     Dosage: 10 MG, QD
     Route: 048
  5. CRESTOR [Concomitant]
     Indication: HYPERLIPIDAEMIA
     Dosage: 10 MG, QD
     Route: 048
  6. ZETIA [Concomitant]
     Indication: HYPERLIPIDAEMIA
     Dosage: 10 MG, QD
  7. NEURONTIN [Concomitant]
     Indication: SPINAL COLUMN STENOSIS
     Dosage: 300MG AM, 600MG PM
     Route: 048
  8. SINEMET [Concomitant]
     Indication: RESTLESS LEGS SYNDROME
     Dosage: 25/100 AT BEDTIME
     Route: 048

REACTIONS (1)
  - PANCREATITIS ACUTE [None]
